FAERS Safety Report 8122432-0 (Version None)
Quarter: 2012Q1

REPORT INFORMATION
  Report Type: 
  Country: None (occurrence: None)
  Receive Date: 20120207
  Receipt Date: 20120207
  Transmission Date: 20120608
  Serious: Yes (Hospitalization)
  Sender: FDA-Public Use
  Company Number: None

PATIENT
  Age: 63 Year
  Sex: Female
  Weight: 106 kg

DRUGS (7)
  1. COMPAZINE [Concomitant]
  2. EXTRA STRENGTH TYLENOL [Suspect]
  3. OFATUMUMAB 1000 MG GSK [Suspect]
     Indication: LYMPHOMA
     Dosage: 1000 MG Q 2 WEEKS IV
     Route: 042
     Dates: start: 20101209, end: 20111117
  4. PRILOSEC [Concomitant]
  5. LORATADINE [Concomitant]
  6. PREDNISONE TAB [Concomitant]
  7. IBUPROFEN (ADVIL) [Concomitant]

REACTIONS (6)
  - DIZZINESS [None]
  - PHOTOPHOBIA [None]
  - NAUSEA [None]
  - VERTIGO [None]
  - TINNITUS [None]
  - HEADACHE [None]
